FAERS Safety Report 10379948 (Version 2)
Quarter: 2014Q3

REPORT INFORMATION
  Report Type: Spontaneous
  Country: BR (occurrence: BR)
  Receive Date: 20140813
  Receipt Date: 20140908
  Transmission Date: 20150326
  Serious: Yes (Hospitalization)
  Sender: FDA-Public Use
  Company Number: BR-PFIZER INC-2014219877

PATIENT
  Age: 79 Year
  Sex: Female
  Weight: 82 kg

DRUGS (8)
  1. NEVANAC [Concomitant]
     Active Substance: NEPAFENAC
     Indication: EYE DISORDER
     Dosage: 1 DROP, 1X/DAY
     Dates: start: 201407
  2. ZYMAR XD [Concomitant]
     Indication: EYE DISORDER
     Dosage: 1 DROP, 2X/DAY
     Dates: start: 201407
  3. LOSARTAN [Concomitant]
     Active Substance: LOSARTAN
     Indication: HYPERTENSION
     Dosage: 1 TABLET, 2X/DAY
     Dates: start: 2013
  4. XALATAN [Suspect]
     Active Substance: LATANOPROST
     Indication: INTRAOCULAR PRESSURE INCREASED
     Dosage: 1 DROP IN EACH EYE, 2X/DAY
     Route: 047
     Dates: start: 201406
  5. AZORGA [Concomitant]
     Active Substance: BRINZOLAMIDE\TIMOLOL MALEATE
     Indication: EYE DISORDER
     Dosage: 1 DROP, 1X/DAY
     Dates: start: 201407
  6. PRED FORTE [Concomitant]
     Active Substance: PREDNISOLONE ACETATE
     Indication: EYE DISORDER
     Dosage: 1 DROP, 1X/DAY
     Dates: start: 201407
  7. DIAMOX SEQUELS [Concomitant]
     Active Substance: ACETAZOLAMIDE
     Indication: INTRAOCULAR PRESSURE INCREASED
     Dosage: 1 TABLET, 2X/DAY
     Dates: start: 201407
  8. XALATAN [Suspect]
     Active Substance: LATANOPROST
     Dosage: 1 DROP EACH EYE, 1X/DAY

REACTIONS (2)
  - Inappropriate schedule of drug administration [Recovered/Resolved]
  - Cataract [Unknown]

NARRATIVE: CASE EVENT DATE: 201406
